FAERS Safety Report 16993694 (Version 5)
Quarter: 2019Q4

REPORT INFORMATION
  Report Type: Spontaneous
  Country: JP (occurrence: JP)
  Receive Date: 20191105
  Receipt Date: 20191226
  Transmission Date: 20200122
  Serious: Yes (Death, Life-Threatening, Hospitalization, Other)
  Sender: FDA-Public Use
  Company Number: JP-009507513-1910JPN002177J

PATIENT
  Age: 71 Year
  Sex: Male
  Weight: 51 kg

DRUGS (9)
  1. EURODIN [Concomitant]
     Indication: SCHIZOPHRENIA
     Dosage: 2 MILLIGRAM, QD
     Route: 048
     Dates: start: 20190925, end: 20191017
  2. KEYTRUDA [Suspect]
     Active Substance: PEMBROLIZUMAB
     Indication: NON-SMALL CELL LUNG CANCER
     Dosage: 200 MILLIGRAM, Q3W
     Route: 041
     Dates: start: 20190925, end: 20190925
  3. CLOPIDOGREL [Concomitant]
     Active Substance: CLOPIDOGREL BISULFATE
     Indication: PROPHYLAXIS
     Dosage: 75 MILLIGRAM, QD
     Route: 048
     Dates: start: 20190925, end: 20191017
  4. LULLAN [Concomitant]
     Active Substance: PEROSPIRONE HYDROCHLORIDE
     Indication: SCHIZOPHRENIA
     Dosage: 16 MILLIGRAM, QD
     Route: 048
     Dates: start: 20190925, end: 20191017
  5. AMITIZA [Concomitant]
     Active Substance: LUBIPROSTONE
     Indication: CONSTIPATION
     Dosage: 24 MICROGRAM, BID
     Route: 048
     Dates: start: 20190925, end: 20191017
  6. CARBOCISTEINE [Concomitant]
     Active Substance: CARBOCYSTEINE
     Indication: PRODUCTIVE COUGH
     Dosage: 500 MILLIGRAM, TID
     Route: 048
     Dates: start: 20190925, end: 20191017
  7. DAIPHEN [Concomitant]
     Active Substance: SULFAMETHOXAZOLE\TRIMETHOPRIM
     Indication: PROPHYLAXIS
     Dosage: 2 DOSAGE FORM,MOON, TREE
     Route: 048
     Dates: start: 20191010, end: 20191017
  8. ONGLYZA [Concomitant]
     Active Substance: SAXAGLIPTIN HYDROCHLORIDE
     Indication: DIABETES MELLITUS
     Dosage: 5 MILLIGRAM, QD
     Route: 048
     Dates: start: 20190925, end: 20191017
  9. MAGMITT [Concomitant]
     Active Substance: MAGNESIUM OXIDE
     Indication: CONSTIPATION
     Dosage: 330 MILLIGRAM, BID
     Route: 048
     Dates: start: 20190925, end: 20191017

REACTIONS (4)
  - Hyperkalaemia [Not Recovered/Not Resolved]
  - Myositis [Fatal]
  - Platelet count decreased [Not Recovered/Not Resolved]
  - Pneumonia aspiration [Fatal]

NARRATIVE: CASE EVENT DATE: 20191006
